FAERS Safety Report 9716924 (Version 1)
Quarter: 2013Q4

REPORT INFORMATION
  Report Type: Spontaneous
  Country: US (occurrence: US)
  Receive Date: 20131127
  Receipt Date: 20131127
  Transmission Date: 20140711
  Serious: No
  Sender: FDA-Public Use
  Company Number: US-GILEAD-2009-0019931

PATIENT
  Sex: Male
  Weight: 99.79 kg

DRUGS (10)
  1. LETAIRIS [Suspect]
     Indication: PULMONARY ARTERIAL HYPERTENSION
     Route: 048
     Dates: start: 20081203, end: 20090121
  2. COUMADIN [Concomitant]
  3. LASIX [Concomitant]
  4. COREG [Concomitant]
  5. COZAAR [Concomitant]
  6. CORDARONE [Concomitant]
  7. LEVOTHYROXINE [Concomitant]
  8. POTASSIUM CHLORIDE [Concomitant]
  9. CALCIUM [Concomitant]
  10. MULTIVITAMIN [Concomitant]

REACTIONS (1)
  - Fluid retention [Unknown]
